FAERS Safety Report 8817772 (Version 3)
Quarter: 2012Q4

REPORT INFORMATION
  Report Type: Report from Study
  Country: JP (occurrence: JP)
  Receive Date: 20121001
  Receipt Date: 20121226
  Transmission Date: 20130627
  Serious: Yes (Hospitalization)
  Sender: FDA-Public Use
  Company Number: PHHY2012JP084506

PATIENT
  Age: 54 Year
  Sex: Male
  Weight: 65 kg

DRUGS (11)
  1. FTY 720 [Suspect]
     Dosage: 0.5 mg, UNK
     Route: 048
     Dates: start: 20120110
  2. AVONEX [Concomitant]
     Indication: MULTIPLE SCLEROSIS
     Dosage: UNK UKN, UNK
     Route: 030
     Dates: end: 20120520
  3. VITAMEDIN [Concomitant]
     Indication: MULTIPLE SCLEROSIS
     Dosage: 75 mg, UNK
     Route: 048
  4. SYMMETREL [Concomitant]
     Indication: MULTIPLE SCLEROSIS
     Dosage: 100 mg, UNK
     Route: 048
  5. ZETIA [Concomitant]
     Indication: HYPERLIPIDAEMIA
     Dosage: 10 mg, UNK
     Route: 048
  6. MEVALOTIN [Concomitant]
     Indication: HYPERLIPIDAEMIA
     Dosage: 10 mg, UNK
     Route: 048
  7. MYSLEE [Concomitant]
     Indication: INSOMNIA
     Dosage: 5 mg, UNK
     Route: 048
  8. MUCODYNE [Concomitant]
     Indication: ASTHMA
     Dosage: 1000 mg, UNK
     Route: 048
  9. LOXONIN [Concomitant]
     Indication: BACK PAIN
     Dosage: 60 mg, UNK
     Route: 048
  10. DIOVAN [Concomitant]
     Indication: HYPERTENSION
     Dosage: 80 mg, UNK
     Route: 048
  11. MEPTIN [Concomitant]
     Indication: ASTHMA

REACTIONS (4)
  - Asthma [Recovered/Resolved]
  - Oxygen saturation decreased [Unknown]
  - Lymphocyte count decreased [Recovering/Resolving]
  - White blood cell count decreased [Recovered/Resolved]
